FAERS Safety Report 9753024 (Version 2)
Quarter: 2014Q1

REPORT INFORMATION
  Report Type: Spontaneous
  Country: BR (occurrence: BR)
  Receive Date: 20131213
  Receipt Date: 20140115
  Transmission Date: 20141002
  Serious: No
  Sender: FDA-Public Use
  Company Number: BR-ASTRAZENECA-2013SE89492

PATIENT
  Sex: Male

DRUGS (5)
  1. BRILINTA [Suspect]
     Indication: INTRACRANIAL ANEURYSM
     Route: 048
     Dates: start: 201306
  2. SOMALGIN CARDIO [Concomitant]
     Indication: STENT PLACEMENT
  3. CARDILOL [Concomitant]
  4. SIMVASTATIN [Concomitant]
     Indication: BLOOD CHOLESTEROL ABNORMAL
  5. ALLOPURINOL [Concomitant]
     Indication: GOUT

REACTIONS (2)
  - Haematoma [Recovering/Resolving]
  - Off label use [Not Recovered/Not Resolved]
